FAERS Safety Report 13126851 (Version 1)
Quarter: 2017Q1

REPORT INFORMATION
  Report Type: Spontaneous
  Country: US (occurrence: US)
  Receive Date: 20170118
  Receipt Date: 20170118
  Transmission Date: 20170428
  Serious: No
  Sender: FDA-Public Use
  Company Number: US-ROCHE-1773303

PATIENT
  Sex: Male

DRUGS (4)
  1. RITUXAN [Suspect]
     Active Substance: RITUXIMAB
     Dosage: 4 DOSES
     Route: 065
     Dates: start: 20160409
  2. RITUXAN [Suspect]
     Active Substance: RITUXIMAB
     Dosage: 4 DOSES
     Route: 065
     Dates: start: 20160326
  3. RITUXAN [Suspect]
     Active Substance: RITUXIMAB
     Dosage: 4 DOSES
     Route: 065
     Dates: start: 20160402
  4. RITUXAN [Suspect]
     Active Substance: RITUXIMAB
     Indication: FACTOR VIII DEFICIENCY
     Dosage: 4 DOSES
     Route: 065
     Dates: start: 20160319

REACTIONS (5)
  - Drug ineffective [Unknown]
  - Red blood cell count increased [Unknown]
  - Mean cell haemoglobin concentration decreased [Unknown]
  - Mean cell volume decreased [Unknown]
  - Mean cell haemoglobin decreased [Unknown]
